FAERS Safety Report 5179327-4 (Version None)
Quarter: 2006Q4

REPORT INFORMATION
  Report Type: 
  Country: None (occurrence: None)
  Receive Date: 20061219
  Receipt Date: 20061218
  Transmission Date: 20070319
  Serious: Yes (Other)
  Sender: FDA-Public Use
  Company Number: US-GLAXOSMITHKLINE-A0631942A

PATIENT
  Age: 58 Year
  Sex: Female

DRUGS (2)
  1. ESKALITH [Suspect]
     Indication: BIPOLAR I DISORDER
     Dosage: 450MG TWICE PER DAY
     Route: 048
  2. KLONOPIN [Suspect]

REACTIONS (2)
  - DYSURIA [None]
  - LOSS OF CONSCIOUSNESS [None]
